FAERS Safety Report 7210474-9 (Version None)
Quarter: 2011Q1

REPORT INFORMATION
  Report Type: 
  Country: None (occurrence: None)
  Receive Date: 20110105
  Receipt Date: 20101021
  Transmission Date: 20110831
  Serious: Yes (Hospitalization, Other)
  Sender: FDA-Public Use
  Company Number: US-BAYER-201016066NA

PATIENT
  Sex: Female
  Weight: 63.636 kg

DRUGS (6)
  1. XANAX [Concomitant]
     Route: 065
  2. GLUCOPHAGE [Concomitant]
     Route: 065
  3. YASMIN [Suspect]
     Indication: PRODUCT USED FOR UNKNOWN INDICATION
     Route: 048
     Dates: start: 20020101
  4. ZOLOFT [Concomitant]
     Route: 065
  5. YASMIN [Suspect]
     Route: 048
     Dates: start: 20020101, end: 20070101
  6. YAZ [Suspect]
     Indication: PRODUCT USED FOR UNKNOWN INDICATION
     Route: 048

REACTIONS (3)
  - DEPRESSION [None]
  - PANCREATITIS [None]
  - CHOLECYSTECTOMY [None]
